FAERS Safety Report 23856157 (Version 1)
Quarter: 2024Q2

REPORT INFORMATION
  Report Type: Spontaneous
  Country: ES (occurrence: ES)
  Receive Date: 20240515
  Receipt Date: 20240515
  Transmission Date: 20240715
  Serious: Yes (Other)
  Sender: FDA-Public Use
  Company Number: ES-AEMPS-1512892

PATIENT
  Age: 62 Year

DRUGS (3)
  1. DICLOFENAC SODIUM [Suspect]
     Active Substance: DICLOFENAC\DICLOFENAC SODIUM
     Indication: Contusion
     Dosage: 50 MG, Q8H (30 CAPSULES)
     Route: 048
     Dates: start: 20240404, end: 20240404
  2. METAMIZOLE [Suspect]
     Active Substance: METAMIZOLE
     Indication: Contusion
     Dosage: 575 MG (4, 575 MG EFG CAPSULES, 20 CAPSULES)
     Route: 048
     Dates: start: 20240404
  3. FLUTICASONE FUROATE\VILANTEROL TRIFENATATE [Concomitant]
     Active Substance: FLUTICASONE FUROATE\VILANTEROL TRIFENATATE
     Indication: Product used for unknown indication

REACTIONS (4)
  - Erythema [Recovered/Resolved]
  - Dry mouth [Recovered/Resolved]
  - Somnolence [Recovered/Resolved]
  - Oedema [Recovered/Resolved]

NARRATIVE: CASE EVENT DATE: 20240405
